FAERS Safety Report 9119580 (Version 2)
Quarter: 2013Q2

REPORT INFORMATION
  Report Type: Spontaneous
  Country: US (occurrence: US)
  Receive Date: 20130226
  Receipt Date: 20130621
  Transmission Date: 20140414
  Serious: No
  Sender: FDA-Public Use
  Company Number: US-009507513-1302USA011780

PATIENT
  Age: 22 Year
  Sex: Female

DRUGS (2)
  1. NEXPLANON [Suspect]
     Indication: CONTRACEPTION
     Dosage: UNK
     Route: 059
     Dates: start: 20121002, end: 20121219
  2. HORMONAL CONTRACEPTIVES (UNSPECIFIED) [Concomitant]

REACTIONS (4)
  - Implant site infection [Unknown]
  - Implant site erythema [Unknown]
  - Implant site discharge [Unknown]
  - Device expulsion [Recovered/Resolved]
